FAERS Safety Report 14238975 (Version 2)
Quarter: 2018Q1

REPORT INFORMATION
  Report Type: Spontaneous
  Country: US (occurrence: US)
  Receive Date: 20171130
  Receipt Date: 20180105
  Transmission Date: 20180508
  Serious: Yes (Life-Threatening, Hospitalization)
  Sender: FDA-Public Use
  Company Number: US-SA-2017SA221137

PATIENT
  Age: 55 Year
  Sex: Male

DRUGS (2)
  1. SOLIQUA 100/33 [Suspect]
     Active Substance: INSULIN GLARGINE\LIXISENATIDE
     Route: 058
  2. SOLOSTAR [Suspect]
     Active Substance: DEVICE

REACTIONS (10)
  - Cerebrovascular accident [Recovered/Resolved]
  - Myocardial infarction [Recovered/Resolved]
  - Headache [Unknown]
  - Dementia [Unknown]
  - Speech disorder [Unknown]
  - Weight decreased [Unknown]
  - Sensory loss [Unknown]
  - Road traffic accident [Unknown]
  - Decreased appetite [Unknown]
  - Blood glucose increased [Unknown]

NARRATIVE: CASE EVENT DATE: 20171210
